FAERS Safety Report 9440813 (Version 3)
Quarter: 2013Q3

REPORT INFORMATION
  Report Type: Spontaneous
  Country: US (occurrence: US)
  Receive Date: 20130805
  Receipt Date: 20130823
  Transmission Date: 20140515
  Serious: Yes (Hospitalization, Other)
  Sender: FDA-Public Use
  Company Number: US-PFIZER INC-2013148421

PATIENT
  Age: 50 Year
  Sex: Male

DRUGS (7)
  1. VIAGRA [Suspect]
     Indication: ERECTILE DYSFUNCTION
     Dosage: 100 MG, AS NEEDED
     Route: 048
     Dates: start: 201212
  2. CITALOPRAM [Concomitant]
     Indication: BIPOLAR DISORDER
     Dosage: 20 MG, 1X/DAY
  3. LITHIUM CARBONATE [Concomitant]
     Indication: BIPOLAR DISORDER
     Dosage: 300 MG, 2X/DAY
  4. VALIUM [Concomitant]
     Indication: BIPOLAR DISORDER
     Dosage: 10 MG, 3X/DAY
  5. BACLOFEN [Concomitant]
     Dosage: 10 MG, 2X/DAY
  6. NEXIUM [Concomitant]
     Dosage: 40 MG, 1X/DAY
  7. REMERON [Concomitant]
     Dosage: 45 MG, 1X/DAY EVERY NIGHT

REACTIONS (1)
  - Suicide attempt [Unknown]
